FAERS Safety Report 14004514 (Version 1)
Quarter: 2017Q3

REPORT INFORMATION
  Report Type: Spontaneous
  Country: FR (occurrence: FR)
  Receive Date: 20170922
  Receipt Date: 20170922
  Transmission Date: 20171128
  Serious: Yes (Other)
  Sender: FDA-Public Use
  Company Number: FR-AUROBINDO-AUR-APL-2017-41006

PATIENT
  Age: 53 Year
  Sex: Female

DRUGS (12)
  1. OLIMEL [Concomitant]
     Active Substance: AMINO ACIDS\DEXTROSE\SOYBEAN OIL
     Indication: STARVATION
  2. SOLUVIT                            /01591701/ [Concomitant]
     Indication: STARVATION
  3. CYMEVAN [Suspect]
     Active Substance: GANCICLOVIR
     Indication: CYTOMEGALOVIRUS INFECTION
     Dosage: 400 MG, TWO TIMES A DAY
     Route: 042
     Dates: start: 20170829
  4. SCOPODERM                          /00008701/ [Suspect]
     Active Substance: SCOPOLAMINE
     Indication: DYSPHAGIA
     Dosage: TTS, 1 MG / 72 HOURS, TRANSDERMAL SYSTEM
     Route: 062
     Dates: start: 20170828, end: 20170831
  5. VANCOMYCIN SANDOZ [Concomitant]
     Active Substance: VANCOMYCIN
     Indication: PRODUCT USED FOR UNKNOWN INDICATION
  6. PANTOPRAZOL ARROW 40 MG  POWDER FOR SOLUTION FOR INJECTION [Suspect]
     Active Substance: PANTOPRAZOLE SODIUM
     Indication: ABDOMINAL PAIN UPPER
     Dosage: 40 MG, TWO TIMES A DAY
     Route: 042
     Dates: start: 20170828
  7. ACICLOVIR MYLAN                    /00587301/ [Suspect]
     Active Substance: ACYCLOVIR
     Indication: PRODUCT USED FOR UNKNOWN INDICATION
     Dosage: 400 MG, 3 TIMES A DAY
     Route: 042
     Dates: start: 20170828
  8. LOVENOX [Suspect]
     Active Substance: ENOXAPARIN SODIUM
     Indication: PROPHYLAXIS
     Dosage: UNK
     Route: 058
     Dates: start: 20170831
  9. VITALIPIDE [Concomitant]
     Indication: STARVATION
  10. PIPERACILLIN TAZOBACTAM PA [Concomitant]
     Active Substance: PIPERACILLIN SODIUM\TAZOBACTAM SODIUM
     Indication: PSEUDOMONAS INFECTION
     Dosage: UNK
     Route: 042
     Dates: start: 20170823
  11. NOVORAPID [Concomitant]
     Active Substance: INSULIN ASPART
     Indication: DIABETES MELLITUS MANAGEMENT
  12. PHOCYTAN [Concomitant]
     Active Substance: .ALPHA.-GLUCOSE-1-PHOSPHATE
     Indication: PARENTERAL NUTRITION

REACTIONS (3)
  - Aggression [Recovered/Resolved]
  - Seizure [Recovered/Resolved]
  - Agitation [Recovered/Resolved]

NARRATIVE: CASE EVENT DATE: 20170901
